FAERS Safety Report 7456654-9 (Version None)
Quarter: 2011Q2

REPORT INFORMATION
  Report Type: 
  Country: None (occurrence: None)
  Receive Date: 20110503
  Receipt Date: 20090416
  Transmission Date: 20111010
  Serious: Yes (Death, Disabling)
  Sender: FDA-Public Use
  Company Number: US-GILEAD-2008-0018565

PATIENT
  Sex: Female
  Weight: 49.032 kg

DRUGS (22)
  1. QVAR 40 [Concomitant]
  2. OMEPRAZOLE [Concomitant]
  3. ALLEGRA [Concomitant]
  4. BIOTIN [Concomitant]
  5. FOSAMAX [Concomitant]
  6. COMBIVENT [Concomitant]
  7. LORAZEPAM [Concomitant]
  8. AMBIEN [Concomitant]
  9. MULTI-VITAMINS [Concomitant]
  10. DIGOXIN [Concomitant]
  11. LETAIRIS [Suspect]
     Route: 048
     Dates: start: 20070801, end: 20080401
  12. FUROSEMIDE [Concomitant]
  13. REVATIO [Concomitant]
  14. CALCITRIOL [Concomitant]
  15. ROBITUSSIN DM [Concomitant]
  16. SPIRONOLACTONE [Concomitant]
  17. MORPHINE [Concomitant]
  18. CALCIUM [Concomitant]
  19. LETAIRIS [Suspect]
     Indication: PULMONARY ARTERIAL HYPERTENSION
     Route: 048
     Dates: start: 20080401
  20. WARFARIN [Concomitant]
  21. DOCUSATE SODIUM [Concomitant]
  22. TYLENOL W/ CODEINE NO. 3 [Concomitant]

REACTIONS (4)
  - DEATH [None]
  - PRURITUS [None]
  - DYSPNOEA [None]
  - RASH [None]
